FAERS Safety Report 8180318-X (Version None)
Quarter: 2012Q1

REPORT INFORMATION
  Report Type: 
  Country: None (occurrence: None)
  Receive Date: 20120302
  Receipt Date: 20120221
  Transmission Date: 20120608
  Serious: Yes (Other)
  Sender: FDA-Public Use
  Company Number: JP-FRI-1000027107

PATIENT
  Sex: Female
  Weight: 78 kg

DRUGS (8)
  1. ROHYPNOL [Concomitant]
     Dosage: 2 MG
     Route: 048
     Dates: start: 20101008
  2. REFLEX [Concomitant]
     Indication: DEPRESSION
     Dosage: 15 MG
     Route: 048
     Dates: start: 20111228, end: 20111229
  3. GASMOTIN [Concomitant]
     Dosage: 15 MG
     Route: 048
     Dates: start: 20110131
  4. RISPERDAL [Concomitant]
     Dosage: 1 MG
     Route: 048
     Dates: start: 20111121
  5. LEXAPRO [Suspect]
     Indication: DEPRESSION
     Dosage: 20 MG
     Route: 048
     Dates: start: 20111017, end: 20111230
  6. GASCON [Concomitant]
     Dosage: 120 MG
     Route: 048
     Dates: start: 20110117
  7. MAGMITT [Concomitant]
     Dosage: 750 MG
     Route: 048
     Dates: start: 20101125
  8. U-PAN [Concomitant]
     Dosage: 1.5 MG
     Route: 048
     Dates: start: 20101008

REACTIONS (1)
  - HEPATIC FUNCTION ABNORMAL [None]
